FAERS Safety Report 4850038-5 (Version None)
Quarter: 2005Q4

REPORT INFORMATION
  Report Type: 
  Country: None (occurrence: None)
  Receive Date: 20051102
  Receipt Date: 20050714
  Transmission Date: 20060501
  Serious: No
  Sender: FDA-Public Use
  Company Number: 200511405BWH

PATIENT
  Sex: Male

DRUGS (6)
  1. LEVITRA [Suspect]
     Dosage: 10 MG, TOTAL DAILY
  2. CARDURA [Concomitant]
  3. AVODART [Concomitant]
  4. ASPIRIN [Concomitant]
  5. PROSCAR [Concomitant]
  6. METHAZOLAMIDE [Concomitant]

REACTIONS (1)
  - DRUG INEFFECTIVE [None]
